FAERS Safety Report 8565345-2 (Version None)
Quarter: 2012Q3

REPORT INFORMATION
  Report Type: 
  Country: None (occurrence: None)
  Receive Date: 20120803
  Receipt Date: 20120719
  Transmission Date: 20120928
  Serious: Yes (Congenital Anomaly)
  Sender: FDA-Public Use
  Company Number: US-ROCHE-1095709

PATIENT

DRUGS (5)
  1. ATENOLOL [Concomitant]
     Indication: HYPERTENSION
     Route: 064
  2. CELLCEPT [Suspect]
     Indication: TRANSPLANT
     Route: 064
     Dates: start: 20090218
  3. AMLODIPINE [Concomitant]
     Indication: HYPERTENSION
     Route: 064
  4. CYCLOSPORINE [Concomitant]
     Indication: TRANSPLANT
     Route: 064
  5. PREDNISONE [Concomitant]
     Indication: TRANSPLANT
     Route: 064

REACTIONS (2)
  - MATERNAL EXPOSURE TIMING UNSPECIFIED [None]
  - DEVELOPMENTAL DELAY [None]
